FAERS Safety Report 6870909-8 (Version None)
Quarter: 2010Q3

REPORT INFORMATION
  Report Type: 
  Country: None (occurrence: None)
  Receive Date: 20100721
  Receipt Date: 20100714
  Transmission Date: 20110219
  Serious: Yes (Other)
  Sender: FDA-Public Use
  Company Number: 2010SP035810

PATIENT
  Age: 60 Year
  Sex: Male

DRUGS (4)
  1. REMERON [Suspect]
     Indication: DEPRESSION
     Dosage: 15 MG;QD;PO
     Route: 048
     Dates: start: 20100531, end: 20100602
  2. U PAN (LORAZEPAM) [Suspect]
     Indication: DEPRESSION
     Dosage: 0.5 MG;TID;PO
     Route: 048
     Dates: start: 20100531, end: 20100602
  3. ANAFRANIL [Concomitant]
  4. ALPRAZOLAM [Concomitant]

REACTIONS (1)
  - AMNESIA [None]
